FAERS Safety Report 20964347 (Version 1)
Quarter: 2022Q2

REPORT INFORMATION
  Report Type: Spontaneous
  Country: CN (occurrence: CN)
  Receive Date: 20220615
  Receipt Date: 20220615
  Transmission Date: 20220721
  Serious: Yes (Hospitalization)
  Sender: FDA-Public Use
  Company Number: CN-PFIZER INC-PV202200002127

PATIENT
  Age: 33 Year
  Sex: Female
  Weight: 61.5 kg

DRUGS (3)
  1. MEDROL [Suspect]
     Active Substance: METHYLPREDNISOLONE
     Indication: Antiinflammatory therapy
     Dosage: 80 MG, 1X/DAY
     Route: 048
     Dates: start: 20220117, end: 20220404
  2. MEDROL [Suspect]
     Active Substance: METHYLPREDNISOLONE
     Dosage: 36 MG, 1X/DAY
     Route: 048
     Dates: start: 20220405, end: 20220510
  3. MEDROL [Suspect]
     Active Substance: METHYLPREDNISOLONE
     Dosage: 20 MG, 1X/DAY
     Route: 048
     Dates: start: 20220511, end: 20220613

REACTIONS (1)
  - Face oedema [Recovering/Resolving]

NARRATIVE: CASE EVENT DATE: 20220419
